FAERS Safety Report 8198383-2 (Version None)
Quarter: 2012Q1

REPORT INFORMATION
  Report Type: 
  Country: None (occurrence: None)
  Receive Date: 20120309
  Receipt Date: 20120104
  Transmission Date: 20120608
  Serious: No
  Sender: FDA-Public Use
  Company Number: US-AMGEN-USASP2012000414

PATIENT
  Age: 75 Year
  Sex: Female

DRUGS (8)
  1. ASPIRIN [Concomitant]
  2. PROLIA [Suspect]
     Indication: OSTEOPOROSIS POSTMENOPAUSAL
     Dosage: UNK UNK, Q6MO
     Dates: start: 20110701
  3. ATENOLOL [Concomitant]
     Dosage: 1 MG, QD
  4. LEVOTHROID [Concomitant]
     Dosage: 1 MUG, QD
  5. TRIAMTERENE AND HYDROCHLOROTHIAZID [Concomitant]
     Dosage: UNK UNK, QD
  6. CITRACAL PETITES [Concomitant]
  7. OMEPRAZOLE [Concomitant]
     Dosage: 1 MG, QD
  8. NORTRIPTYLINE HCL [Concomitant]
     Dosage: UNK UNK, QD

REACTIONS (7)
  - MALAISE [None]
  - MICTURITION URGENCY [None]
  - FEELING HOT [None]
  - INJECTION SITE PAIN [None]
  - ANXIETY [None]
  - NAUSEA [None]
  - HEADACHE [None]
